FAERS Safety Report 23229227 (Version 3)
Quarter: 2023Q4

REPORT INFORMATION
  Report Type: Spontaneous
  Country: CH (occurrence: CH)
  Receive Date: 20231127
  Receipt Date: 20231226
  Transmission Date: 20240109
  Serious: Yes (Other)
  Sender: FDA-Public Use
  Company Number: CH-NOVOPROD-1141281

PATIENT
  Age: 39 Year
  Sex: Female
  Weight: 99 kg

DRUGS (1)
  1. SAXENDA [Suspect]
     Active Substance: LIRAGLUTIDE
     Indication: Obesity
     Dosage: 3 MG, QD
     Route: 058
     Dates: start: 20221201, end: 20230201

REACTIONS (3)
  - Abortion spontaneous [Unknown]
  - Product use issue [Unknown]
  - Maternal exposure during pregnancy [Unknown]

NARRATIVE: CASE EVENT DATE: 20230201
